FAERS Safety Report 26194565 (Version 1)
Quarter: 2025Q4

REPORT INFORMATION
  Report Type: Spontaneous
  Country: HK (occurrence: HK)
  Receive Date: 20251224
  Receipt Date: 20251224
  Transmission Date: 20260117
  Serious: Yes (Life-Threatening, Hospitalization, Other)
  Sender: EXELA PHARMA SCIENCES
  Company Number: HK-EXELAPHARMA-2025EXLA00222

PATIENT
  Age: 33 Year
  Sex: Male

DRUGS (2)
  1. AKOVAZ [Suspect]
     Active Substance: EPHEDRINE SULFATE
     Indication: Cough
     Dates: start: 20240905
  2. PROMETHAZINE [Suspect]
     Active Substance: PROMETHAZINE HYDROCHLORIDE
     Indication: Cough
     Dates: start: 20240905

REACTIONS (4)
  - Loss of consciousness [Unknown]
  - Rhabdomyolysis [Unknown]
  - Hyperthermia [Recovering/Resolving]
  - Drug abuse [Unknown]

NARRATIVE: CASE EVENT DATE: 20240905
